FAERS Safety Report 5158408-5 (Version None)
Quarter: 2006Q4

REPORT INFORMATION
  Report Type: 
  Country: None (occurrence: None)
  Receive Date: 20061128
  Receipt Date: 20060920
  Transmission Date: 20070319
  Serious: Yes (Hospitalization)
  Sender: FDA-Public Use
  Company Number: TW-AVENTIS-200619839GDDC

PATIENT
  Age: 49 Year
  Sex: Female

DRUGS (6)
  1. ARAVA [Suspect]
     Indication: RHEUMATOID ARTHRITIS
     Route: 048
     Dates: start: 20060523, end: 20060914
  2. ARAVA [Suspect]
     Dosage: DOSE: UNK
  3. PREDNISOLONE [Concomitant]
     Indication: INFLAMMATION
     Route: 048
     Dates: start: 20000626
  4. SULFASALAZINE [Concomitant]
     Indication: ARTHRITIS
     Route: 048
     Dates: start: 20000705
  5. NIMESULIDE [Concomitant]
     Indication: MYALGIA
     Route: 048
     Dates: start: 20050329
  6. METHOTREXATE [Concomitant]
     Route: 048
     Dates: start: 20000705

REACTIONS (6)
  - BLOOD LACTATE DEHYDROGENASE INCREASED [None]
  - DIARRHOEA [None]
  - GAMMA-GLUTAMYLTRANSFERASE INCREASED [None]
  - HEPATIC FUNCTION ABNORMAL [None]
  - MYCOPLASMA INFECTION [None]
  - PYREXIA [None]
